FAERS Safety Report 6793997-6 (Version None)
Quarter: 2010Q2

REPORT INFORMATION
  Report Type: 
  Country: None (occurrence: None)
  Receive Date: 20100624
  Receipt Date: 20090426
  Transmission Date: 20101027
  Serious: Yes (Other)
  Sender: FDA-Public Use
  Company Number: US-PFIZER INC-2009182104

PATIENT
  Sex: Female
  Weight: 83.9 kg

DRUGS (2)
  1. MEDROXYPROGESTERONE ACETATE [Suspect]
     Indication: CONTRACEPTION
     Dosage: 150 MG, EVERY 3 MONTHS, FIRST INJECTION
     Dates: start: 20070703, end: 20070703
  2. MEDROXYPROGESTERONE ACETATE [Suspect]
     Dosage: 150 MG, EVERY 3 MONTHS, MOST RECENT INJECTION
     Dates: start: 20090303, end: 20090303

REACTIONS (3)
  - DRUG INEFFECTIVE [None]
  - METRORRHAGIA [None]
  - UNINTENDED PREGNANCY [None]
